FAERS Safety Report 7215844-0 (Version None)
Quarter: 2011Q1

REPORT INFORMATION
  Report Type: 
  Country: None (occurrence: None)
  Receive Date: 20110107
  Receipt Date: 20101216
  Transmission Date: 20110831
  Serious: Yes (Death, Hospitalization)
  Sender: FDA-Public Use
  Company Number: FR-PFIZER INC-2006028542

PATIENT
  Age: 80 Year
  Sex: Male
  Weight: 65 kg

DRUGS (9)
  1. ZITHROMAX [Suspect]
     Indication: BRONCHITIS
     Dosage: 250 MG, UNK
     Route: 048
     Dates: start: 20051225, end: 20060101
  2. LIPANTHYL [Concomitant]
     Dosage: UNKNOWN
     Route: 048
  3. ATENOLOL [Concomitant]
     Dosage: UNKNOWN
     Route: 048
  4. ZESTORETIC [Concomitant]
     Dosage: UNKNOWN
     Route: 048
  5. CEFIXIME [Interacting]
     Indication: BRONCHITIS
     Dosage: 200 MG, UNK
     Route: 048
     Dates: start: 20060102, end: 20060103
  6. PREVISCAN [Interacting]
     Indication: ILL-DEFINED DISORDER
     Dosage: 20 MG, UNK
     Route: 048
     Dates: end: 20060108
  7. ALLOPURINOL [Concomitant]
     Route: 065
  8. MOPRAL [Concomitant]
     Route: 065
  9. STILNOX [Concomitant]
     Route: 065

REACTIONS (5)
  - PULMONARY HAEMORRHAGE [None]
  - ANAEMIA [None]
  - ACUTE RESPIRATORY FAILURE [None]
  - OVERDOSE [None]
  - DRUG INTERACTION [None]
